FAERS Safety Report 8990512 (Version 1)
Quarter: 2012Q4

REPORT INFORMATION
  Report Type: Report from Study
  Country: CA (occurrence: CA)
  Receive Date: 20121228
  Receipt Date: 20121228
  Transmission Date: 20130627
  Serious: Yes (Other)
  Sender: FDA-Public Use
  Company Number: CA-ROCHE-1167486

PATIENT
  Age: 60 Year
  Sex: Male
  Weight: 104 kg

DRUGS (1)
  1. OMALIZUMAB [Suspect]
     Indication: ASTHMA
     Route: 065
     Dates: start: 20060103

REACTIONS (20)
  - Asthma [Recovering/Resolving]
  - Diabetes mellitus [Unknown]
  - Headache [Recovering/Resolving]
  - Lower respiratory tract infection [Unknown]
  - Productive cough [Unknown]
  - Migraine [Unknown]
  - Mass [Unknown]
  - Pruritus [Unknown]
  - Weight decreased [Unknown]
  - Neck pain [Recovering/Resolving]
  - Feeling abnormal [Unknown]
  - Dizziness [Unknown]
  - Drug ineffective [Unknown]
  - Dyspnoea [Unknown]
  - Chest discomfort [Unknown]
  - Pyrexia [Unknown]
  - Wheezing [Unknown]
  - Cough [Unknown]
  - Pulmonary congestion [Unknown]
  - Increased upper airway secretion [Unknown]
